FAERS Safety Report 11453754 (Version 1)
Quarter: 2015Q3

REPORT INFORMATION
  Report Type: Spontaneous
  Country: US (occurrence: US)
  Receive Date: 20150831
  Receipt Date: 20150831
  Transmission Date: 20151125
  Serious: No
  Sender: FDA-Public Use
  Company Number: US-ELI_LILLY_AND_COMPANY-US201001003578

PATIENT
  Sex: Female

DRUGS (1)
  1. CYMBALTA [Suspect]
     Active Substance: DULOXETINE HYDROCHLORIDE
     Indication: STRESS
     Dosage: 30 MG, DAILY (1/D)
     Route: 048
     Dates: start: 20100109

REACTIONS (9)
  - Off label use [Unknown]
  - Fatigue [Unknown]
  - Decreased appetite [Unknown]
  - Insomnia [Unknown]
  - Abdominal distension [Unknown]
  - Diarrhoea [Recovered/Resolved]
  - Nausea [Unknown]
  - Constipation [Unknown]
  - Dry mouth [Unknown]

NARRATIVE: CASE EVENT DATE: 20100109
